FAERS Safety Report 11713389 (Version 1)
Quarter: 2015Q4

REPORT INFORMATION
  Report Type: Other
  Country: DE (occurrence: DE)
  Receive Date: 20151109
  Receipt Date: 20151109
  Transmission Date: 20160304
  Serious: Yes (Other)
  Sender: FDA-Public Use
  Company Number: DE-LUPIN PHARMACEUTICALS INC.-E2B_00004436

PATIENT
  Age: 1 Day
  Sex: Male
  Weight: 2.45 kg

DRUGS (6)
  1. ZIPRASIDONE. [Suspect]
     Active Substance: ZIPRASIDONE
     Indication: PSYCHOTIC DISORDER
     Route: 064
     Dates: start: 20141007, end: 20150706
  2. FEMIBION [Concomitant]
     Active Substance: VITAMINS
     Indication: PROPHYLAXIS OF NEURAL TUBE DEFECT
     Route: 064
     Dates: start: 20141008, end: 20150701
  3. CLEXANE [Concomitant]
     Active Substance: ENOXAPARIN SODIUM
     Indication: COAGULOPATHY
     Route: 064
     Dates: start: 20141027, end: 20141231
  4. MISOPROSTOL. [Concomitant]
     Active Substance: MISOPROSTOL
     Indication: LABOUR INDUCTION
     Route: 064
     Dates: start: 20150702, end: 20150702
  5. ESTRIFAM [Concomitant]
     Active Substance: ESTRADIOL
     Indication: PROPHYLAXIS OF ABORTION
     Route: 064
     Dates: start: 20141021, end: 20141231
  6. PROGESTERON [Concomitant]
     Indication: PROPHYLAXIS OF ABORTION
     Route: 064
     Dates: start: 20141021, end: 20141231

REACTIONS (2)
  - Foetal exposure during pregnancy [Unknown]
  - Small for dates baby [Recovered/Resolved]

NARRATIVE: CASE EVENT DATE: 20150706
